FAERS Safety Report 22536537 (Version 1)
Quarter: 2023Q2

REPORT INFORMATION
  Report Type: Spontaneous
  Country: PT (occurrence: PT)
  Receive Date: 20230608
  Receipt Date: 20230608
  Transmission Date: 20230722
  Serious: Yes (Hospitalization)
  Sender: FDA-Public Use
  Company Number: None

PATIENT
  Age: 60 Year
  Sex: Male

DRUGS (9)
  1. CARBOPLATIN [Suspect]
     Active Substance: CARBOPLATIN
     Indication: Product used for unknown indication
     Dates: start: 20210629
  2. ETOPOSIDE [Suspect]
     Active Substance: ETOPOSIDE
     Indication: Product used for unknown indication
     Dates: start: 20210629
  3. TROSPIUM [Concomitant]
     Active Substance: TROSPIUM
  4. PROGESTERONE [Concomitant]
     Active Substance: PROGESTERONE
  5. SIMVASTATIN [Concomitant]
     Active Substance: SIMVASTATIN
  6. MEXAZOLAM [Concomitant]
     Active Substance: MEXAZOLAM
  7. FORMOTEROL [Concomitant]
     Active Substance: FORMOTEROL
  8. BUDESONIDE [Concomitant]
     Active Substance: BUDESONIDE
  9. SILODOSIN [Concomitant]
     Active Substance: SILODOSIN

REACTIONS (5)
  - Myelosuppression [Recovered/Resolved]
  - Febrile neutropenia [Recovered/Resolved]
  - Hyperhidrosis [Recovered/Resolved]
  - Pyrexia [Recovered/Resolved]
  - Fatigue [Recovered/Resolved]

NARRATIVE: CASE EVENT DATE: 20210712
